FAERS Safety Report 25148117 (Version 1)
Quarter: 2025Q2

REPORT INFORMATION
  Report Type: Spontaneous
  Country: TR (occurrence: TR)
  Receive Date: 20250402
  Receipt Date: 20250402
  Transmission Date: 20250717
  Serious: Yes (Hospitalization, Other)
  Sender: GLAND PHARMA
  Company Number: TR-GLANDPHARMA-TR-2025GLNLIT00882

PATIENT
  Age: 2 Year
  Sex: Male

DRUGS (4)
  1. TRANEXAMIC ACID [Suspect]
     Active Substance: TRANEXAMIC ACID
     Indication: Pulmonary haemorrhage
  2. LEVETIRACETAM [Concomitant]
     Active Substance: LEVETIRACETAM
     Indication: Epilepsy
     Route: 065
  3. PHENOBARBITAL [Concomitant]
     Active Substance: PHENOBARBITAL
     Indication: Epilepsy
     Route: 065
  4. CEFEPIME [Concomitant]
     Active Substance: CEFEPIME HYDROCHLORIDE
     Indication: Antibiotic therapy
     Route: 065

REACTIONS (1)
  - Anaphylactic reaction [Recovered/Resolved]
